FAERS Safety Report 25853059 (Version 1)
Quarter: 2025Q3

REPORT INFORMATION
  Report Type: Spontaneous
  Country: US (occurrence: US)
  Receive Date: 20250926
  Receipt Date: 20250926
  Transmission Date: 20251020
  Serious: No
  Sender: GLAND PHARMA LTD
  Company Number: US-GLANDPHARMA-US-2025GLNSPO01768

PATIENT

DRUGS (7)
  1. METHOCARBAMOL [Suspect]
     Active Substance: METHOCARBAMOL
     Indication: Product used for unknown indication
     Route: 065
  2. CYMBALTA [Suspect]
     Active Substance: DULOXETINE HYDROCHLORIDE
     Indication: Product used for unknown indication
     Route: 065
  3. GABAPENTIN [Suspect]
     Active Substance: GABAPENTIN
     Indication: Product used for unknown indication
     Route: 065
  4. LYRICA [Suspect]
     Active Substance: PREGABALIN
     Indication: Product used for unknown indication
     Route: 065
  5. PRISTIQ EXTENDED-RELEASE [Suspect]
     Active Substance: DESVENLAFAXINE SUCCINATE
     Indication: Product used for unknown indication
     Route: 065
  6. BACLOFEN [Suspect]
     Active Substance: BACLOFEN
     Indication: Product used for unknown indication
     Route: 065
  7. CAPLYTA [Suspect]
     Active Substance: LUMATEPERONE
     Indication: Product used for unknown indication
     Route: 065

REACTIONS (2)
  - Pharyngeal swelling [Recovering/Resolving]
  - Oedema [Recovering/Resolving]
